FAERS Safety Report 8349208-3 (Version None)
Quarter: 2012Q2

REPORT INFORMATION
  Report Type: 
  Country: None (occurrence: None)
  Receive Date: 20120510
  Receipt Date: 20120502
  Transmission Date: 20120825
  Serious: Yes (Other)
  Sender: FDA-Public Use
  Company Number: PHHY2012CH038045

PATIENT
  Age: 55 Year
  Sex: Female

DRUGS (4)
  1. ESTRADERM [Suspect]
     Dosage: 1 DF, PER SIX DAYS
  2. ASACOL [Suspect]
     Indication: COLITIS ULCERATIVE
     Dosage: 1 DF, TID
     Route: 048
     Dates: start: 20060201, end: 20111202
  3. CALPEROS D3 [Concomitant]
     Dosage: 1 DF, BID
  4. PROGESTERONE [Concomitant]
     Dosage: 1 DF, PER SIX DAYS
     Route: 048

REACTIONS (14)
  - COUGH [None]
  - CHEST PAIN [None]
  - HEADACHE [None]
  - INAPPROPRIATE SCHEDULE OF DRUG ADMINISTRATION [None]
  - DIARRHOEA [None]
  - NAUSEA [None]
  - RESPIRATORY DISORDER [None]
  - RHINITIS [None]
  - LUNG INFILTRATION [None]
  - RASH MACULO-PAPULAR [None]
  - ASTHENIA [None]
  - BRONCHOPNEUMONIA [None]
  - COLITIS ULCERATIVE [None]
  - PITYRIASIS ROSEA [None]
